FAERS Safety Report 8124581-X (Version None)
Quarter: 2012Q1

REPORT INFORMATION
  Report Type: 
  Country: None (occurrence: None)
  Receive Date: 20120209
  Receipt Date: 20120131
  Transmission Date: 20120608
  Serious: Yes (Hospitalization)
  Sender: FDA-Public Use
  Company Number: CA-JNJFOC-20120201743

PATIENT
  Sex: Male

DRUGS (6)
  1. ADVAIR DISKUS 100/50 [Concomitant]
  2. SIMPONI [Suspect]
     Indication: ANKYLOSING SPONDYLITIS
     Route: 058
     Dates: start: 20111007
  3. INDOMETHACIN [Concomitant]
  4. VENTOLIN [Concomitant]
  5. METHOTREXATE [Concomitant]
  6. CYTOTEC [Concomitant]

REACTIONS (1)
  - DEEP VEIN THROMBOSIS [None]
